FAERS Safety Report 8918502 (Version 2)
Quarter: 2013Q3

REPORT INFORMATION
  Report Type: Spontaneous
  Country: US (occurrence: US)
  Receive Date: 20121120
  Receipt Date: 20130816
  Transmission Date: 20140515
  Serious: No
  Sender: FDA-Public Use
  Company Number: US-ASTRAZENECA-2012SE18508

PATIENT
  Age: 58 Year
  Sex: Female

DRUGS (2)
  1. NEXIUM [Suspect]
     Route: 048
  2. ZOMIG [Suspect]
     Indication: MIGRAINE
     Route: 048

REACTIONS (5)
  - Migraine [Unknown]
  - Abnormal dreams [Unknown]
  - Screaming [Unknown]
  - Headache [Unknown]
  - Drug dose omission [Unknown]
